FAERS Safety Report 25766140 (Version 1)
Quarter: 2025Q3

REPORT INFORMATION
  Report Type: Spontaneous
  Country: US (occurrence: None)
  Receive Date: 20250904
  Receipt Date: 20250904
  Transmission Date: 20251020
  Serious: Yes (Hospitalization)
  Sender: FDA-CTU
  Company Number: None

PATIENT
  Age: 24 Year
  Sex: Female

DRUGS (1)
  1. TOBRAMYCIN [Suspect]
     Active Substance: TOBRAMYCIN
     Indication: Lung transplant
     Route: 002
     Dates: start: 20230315

REACTIONS (5)
  - Pulmonary function test decreased [None]
  - Decreased appetite [None]
  - Weight decreased [None]
  - Lethargy [None]
  - Therapy change [None]

NARRATIVE: CASE EVENT DATE: 20250717
